FAERS Safety Report 6082805-7 (Version None)
Quarter: 2009Q1

REPORT INFORMATION
  Report Type: 
  Country: None (occurrence: None)
  Receive Date: 20090202
  Receipt Date: 20070330
  Transmission Date: 20090719
  Serious: No
  Sender: FDA-Public Use
  Company Number: 262153

PATIENT
  Sex: Female

DRUGS (3)
  1. NOVOLOG [Suspect]
     Indication: INSULIN-REQUIRING TYPE 2 DIABETES MELLITUS
     Dosage: SLIDING SCALE, SUBCUTANEOUS
     Route: 058
     Dates: end: 20070326
  2. NOVOLOG [Suspect]
     Indication: INSULIN-REQUIRING TYPE 2 DIABETES MELLITUS
     Dosage: SLIDING SCALE, SUBCUTANEOUS
     Route: 058
     Dates: start: 20070326
  3. LEVEMIR FLEXPEN (INSULIN DETEMIR) SOLUTION FOR INJECTION [Concomitant]

REACTIONS (1)
  - KETOACIDOSIS [None]
